FAERS Safety Report 18486644 (Version 2)
Quarter: 2020Q4

REPORT INFORMATION
  Report Type: Report from Study
  Country: None (occurrence: IE)
  Receive Date: 20201110
  Receipt Date: 20201118
  Transmission Date: 20210114
  Serious: Yes (Hospitalization)
  Sender: FDA-Public Use
  Company Number: IE-ABBVIE-20P-229-3636028-00

PATIENT
  Age: 51 Year
  Sex: Male
  Weight: 88.5 kg

DRUGS (5)
  1. METHOTREXATE. [Concomitant]
     Active Substance: METHOTREXATE
     Indication: COLITIS ULCERATIVE
     Route: 048
     Dates: start: 2017
  2. ASACOL [Concomitant]
     Active Substance: MESALAMINE
     Indication: COLITIS ULCERATIVE
     Route: 048
     Dates: start: 2015
  3. UPADACITINIB [Suspect]
     Active Substance: UPADACITINIB
     Indication: COLITIS ULCERATIVE
     Route: 048
     Dates: start: 20201006, end: 20201102
  4. FOLIC ACID. [Concomitant]
     Active Substance: FOLIC ACID
     Indication: COLITIS ULCERATIVE
     Route: 048
     Dates: start: 2017
  5. UPADACITINIB [Suspect]
     Active Substance: UPADACITINIB
     Route: 048
     Dates: start: 20201112

REACTIONS (1)
  - Herpes zoster oticus [Not Recovered/Not Resolved]

NARRATIVE: CASE EVENT DATE: 20201029
